FAERS Safety Report 25571280 (Version 1)
Quarter: 2025Q3

REPORT INFORMATION
  Report Type: Report from Study
  Country: IL (occurrence: IL)
  Receive Date: 20250717
  Receipt Date: 20250717
  Transmission Date: 20251021
  Serious: Yes (Other)
  Sender: TEVA
  Company Number: IL-TEVA-VS-3348294

PATIENT
  Age: 6 Year

DRUGS (3)
  1. DIAZEPAM [Suspect]
     Active Substance: DIAZEPAM
     Indication: CSWS syndrome
     Dosage: 1 MG/KG/DAY (MAXIMUM 40 MG),WITH A 24-HOUR INTERVAL
     Route: 048
  2. SULTHIAME [Concomitant]
     Active Substance: SULTHIAME
     Indication: CSWS syndrome
     Route: 065
  3. AMANTADINE [Concomitant]
     Active Substance: AMANTADINE
     Indication: CSWS syndrome
     Route: 065

REACTIONS (2)
  - Therapy non-responder [Unknown]
  - Behaviour disorder [Unknown]
